FAERS Safety Report 6011551-0 (Version None)
Quarter: 2008Q4

REPORT INFORMATION
  Report Type: 
  Country: None (occurrence: None)
  Receive Date: 20081218
  Receipt Date: 20080908
  Transmission Date: 20090506
  Serious: No
  Sender: FDA-Public Use
  Company Number: US-ASTRAZENECA-2008UW18613

PATIENT
  Age: 65 Year
  Sex: Female
  Weight: 76.7 kg

DRUGS (5)
  1. CRESTOR [Suspect]
     Indication: BLOOD CHOLESTEROL INCREASED
     Route: 048
     Dates: start: 20080801
  2. BENICAR [Concomitant]
  3. GERD MEDICATION [Concomitant]
  4. SPIRONOLACTONE [Concomitant]
  5. PROVENTIL [Concomitant]

REACTIONS (1)
  - SWELLING FACE [None]
